FAERS Safety Report 4484884-7 (Version None)
Quarter: 2004Q3

REPORT INFORMATION
  Report Type: 
  Country: None (occurrence: None)
  Receive Date: 20040921
  Receipt Date: 20030903
  Transmission Date: 20050211
  Serious: Yes (Other)
  Sender: FDA-Public Use
  Company Number: 163-20785-03090151

PATIENT

DRUGS (2)
  1. THALOMID [Suspect]
     Indication: NEOPLASM
     Dosage: 400 MG/M2, QD, ORAL
     Route: 048
  2. CARBOPLATIN [Suspect]
     Indication: NEOPLASM

REACTIONS (1)
  - NEUTROPENIA [None]
